FAERS Safety Report 6834745-0 (Version None)
Quarter: 2010Q3

REPORT INFORMATION
  Report Type: 
  Country: None (occurrence: None)
  Receive Date: 20100712
  Receipt Date: 20090918
  Transmission Date: 20110219
  Serious: No
  Sender: FDA-Public Use
  Company Number: US-PFIZER INC-2007033155

PATIENT
  Sex: Female
  Weight: 61.23 kg

DRUGS (7)
  1. CHANTIX [Suspect]
     Indication: SMOKING CESSATION THERAPY
     Dosage: 0.5 MG, 1X/DAY
     Route: 048
     Dates: start: 20070419, end: 20070101
  2. LITHIUM [Concomitant]
  3. THORAZINE [Concomitant]
  4. XANAX [Concomitant]
  5. PROZAC [Concomitant]
  6. TOLTERODINE [Concomitant]
  7. LACTULOSE [Concomitant]

REACTIONS (4)
  - ASTHENIA [None]
  - BLOOD CHOLESTEROL INCREASED [None]
  - NAUSEA [None]
  - VOMITING [None]
